FAERS Safety Report 16290008 (Version 1)
Quarter: 2019Q2

REPORT INFORMATION
  Report Type: Spontaneous
  Country: US (occurrence: US)
  Receive Date: 20190404
  Receipt Date: 20190404
  Transmission Date: 20190711
  Serious: Yes (Other)
  Sender: FDA-Public Use
  Company Number: None

PATIENT
  Age: 23 Year
  Sex: Female

DRUGS (3)
  1. 0.9% SODIUM CHLORIDE [Suspect]
     Active Substance: SODIUM CHLORIDE
  2. FOLIC ACID. [Suspect]
     Active Substance: FOLIC ACID
  3. INFUVITE [Suspect]
     Active Substance: VITAMINS

REACTIONS (3)
  - Dyspnoea [None]
  - Chest discomfort [None]
  - Dizziness [None]

NARRATIVE: CASE EVENT DATE: 20190401
